FAERS Safety Report 4301810-1 (Version None)
Quarter: 2004Q1

REPORT INFORMATION
  Report Type: 
  Country: None (occurrence: None)
  Receive Date: 20040218
  Receipt Date: 20030403
  Transmission Date: 20041129
  Serious: Yes (Hospitalization)
  Sender: FDA-Public Use
  Company Number: 2003154404US

PATIENT
  Age: 46 Year
  Sex: Female

DRUGS (16)
  1. DELTASONE [Suspect]
     Dosage: 5 MG, QD, ORAL
     Route: 048
  2. METHOTREXATE [Suspect]
     Dosage: 20 MG, WEEKLY, SUBCUTANEOUS
     Route: 058
     Dates: start: 19880101, end: 20030111
  3. ENBREL [Suspect]
     Indication: RHEUMATOID ARTHRITIS
     Dates: start: 19990401
  4. IBUPROFEN [Concomitant]
  5. CLONAZEPAM [Concomitant]
  6. RISEDRONATE SODIUM [Concomitant]
  7. ALBUTEROL [Concomitant]
  8. PHENOBABITAL [Concomitant]
  9. AMLODIPINE BESYLATE [Concomitant]
  10. QUINAPRIL HCL [Concomitant]
  11. ETHINYLESTRADIOL W/NORETHINDRONE [Concomitant]
  12. VICODIN [Concomitant]
  13. ZOLPIDEM TARTRATE [Concomitant]
  14. MULTIVITAMINS (ERGOCALCIFEROL, RETINOL, PANTHENOL) [Concomitant]
  15. FOLIC ACID [Concomitant]
  16. SULINDAC [Concomitant]

REACTIONS (2)
  - POSTOPERATIVE INFECTION [None]
  - STREPTOCOCCAL INFECTION [None]
